FAERS Safety Report 8366394-X (Version None)
Quarter: 2012Q2

REPORT INFORMATION
  Report Type: 
  Country: None (occurrence: None)
  Receive Date: 20120517
  Receipt Date: 20120514
  Transmission Date: 20120825
  Serious: Yes (Other)
  Sender: FDA-Public Use
  Company Number: BR-PFIZER INC-2012026237

PATIENT
  Age: 65 Year
  Sex: Female
  Weight: 93 kg

DRUGS (4)
  1. VARENICLINE TARTRATE [Suspect]
     Indication: SMOKING CESSATION THERAPY
     Dosage: UNK, TWICE DAILY
     Route: 048
     Dates: start: 20120131, end: 20120101
  2. CRESTOR [Concomitant]
     Indication: BLOOD CHOLESTEROL INCREASED
     Dosage: UNK, ONCE AT NIGHT
     Dates: start: 20100101
  3. ALENDRONATE SODIUM [Concomitant]
     Indication: OSTEOPOROSIS
     Dosage: UNK, ONCE WEEKLY
     Dates: start: 20070101
  4. INDAPAMIDE [Concomitant]
     Indication: HYPERTENSION
     Dosage: UNK, ONCE DAILY
     Dates: start: 20080101

REACTIONS (7)
  - ABNORMAL DREAMS [None]
  - ANXIETY [None]
  - INSOMNIA [None]
  - HEADACHE [None]
  - NERVOUSNESS [None]
  - FATIGUE [None]
  - HYPERTENSIVE CRISIS [None]
